FAERS Safety Report 4494525-0 (Version None)
Quarter: 2004Q4

REPORT INFORMATION
  Report Type: 
  Country: None (occurrence: None)
  Receive Date: 20041105
  Receipt Date: 20041019
  Transmission Date: 20050328
  Serious: Yes (Hospitalization)
  Sender: FDA-Public Use
  Company Number: JP-MERCK-0410USA03499

PATIENT
  Age: 35 Year
  Sex: Female

DRUGS (6)
  1. SINGULAIR [Suspect]
     Indication: ASTHMA
     Route: 048
     Dates: start: 20041007
  2. ZITHROMAX [Suspect]
     Indication: ASTHMA
     Route: 048
     Dates: start: 20041007, end: 20041009
  3. BRUFEN [Concomitant]
     Indication: ASTHMA
     Route: 048
     Dates: start: 20041007
  4. BRUFEN [Concomitant]
     Route: 048
     Dates: start: 20041007
  5. MEPTIN [Concomitant]
     Indication: ASTHMA
     Route: 065
     Dates: start: 20041007
  6. MEPTIN [Concomitant]
     Route: 065
     Dates: start: 20041007

REACTIONS (4)
  - EXANTHEM [None]
  - HEPATIC FUNCTION ABNORMAL [None]
  - JAUNDICE [None]
  - PYREXIA [None]
